FAERS Safety Report 16609987 (Version 1)
Quarter: 2019Q3

REPORT INFORMATION
  Report Type: Report from Study
  Country: JP (occurrence: JP)
  Receive Date: 20190722
  Receipt Date: 20190722
  Transmission Date: 20191004
  Serious: Yes (Other)
  Sender: FDA-Public Use
  Company Number: JP-GILEAD-2019-0419212

PATIENT
  Age: 42 Year
  Sex: Male

DRUGS (5)
  1. TIVICAY [Suspect]
     Active Substance: DOLUTEGRAVIR SODIUM
     Indication: HIV INFECTION
     Route: 048
     Dates: start: 20160415
  2. FERROMIA [Concomitant]
     Active Substance: SODIUM FERROUS CITRATE
     Route: 048
     Dates: start: 20170801, end: 20171127
  3. BENAMBAX [Concomitant]
     Active Substance: PENTAMIDINE
     Indication: PROPHYLAXIS
     Route: 055
     Dates: start: 20170401, end: 20170605
  4. HICEE [Concomitant]
     Active Substance: ASCORBIC ACID\VITAMINS
     Route: 048
     Dates: start: 20170801, end: 20171127
  5. EMTRICITABINE/TENOFOVIR ALAFENAMIDE [Suspect]
     Active Substance: EMTRICITABINE\TENOFOVIR
     Indication: HIV INFECTION
     Dosage: 1 DOSAGE FORM, QD
     Route: 048
     Dates: start: 20170501

REACTIONS (3)
  - Metastases to lung [Not Recovered/Not Resolved]
  - Rectal cancer [Not Recovered/Not Resolved]
  - Metastases to urinary tract [Not Recovered/Not Resolved]

NARRATIVE: CASE EVENT DATE: 20190319
